FAERS Safety Report 18942148 (Version 1)
Quarter: 2021Q1

REPORT INFORMATION
  Report Type: Spontaneous
  Country: US (occurrence: US)
  Receive Date: 20210226
  Receipt Date: 20210226
  Transmission Date: 20210420
  Serious: Yes (Other)
  Sender: FDA-Public Use
  Company Number: US-ASTELLAS-2021US006522

PATIENT
  Sex: Male

DRUGS (1)
  1. MYCAMINE [Suspect]
     Active Substance: MICAFUNGIN SODIUM
     Indication: LOCALISED INFECTION
     Dosage: UNK UNK, ONCE DAILY
     Route: 042
     Dates: start: 202102

REACTIONS (3)
  - Drug interaction [Unknown]
  - Asthenia [Unknown]
  - Pain in extremity [Unknown]

NARRATIVE: CASE EVENT DATE: 202102
